FAERS Safety Report 16207807 (Version 4)
Quarter: 2019Q3

REPORT INFORMATION
  Report Type: Spontaneous
  Country: US (occurrence: US)
  Receive Date: 20190417
  Receipt Date: 20190717
  Transmission Date: 20191004
  Serious: Yes (Hospitalization, Other)
  Sender: FDA-Public Use
  Company Number: US-GLAXOSMITHKLINE-US2019065017

PATIENT
  Age: 83 Year
  Sex: Female

DRUGS (2)
  1. TRELEGY ELLIPTA [Suspect]
     Active Substance: FLUTICASONE FUROATE\UMECLIDINIUM BROMIDE\VILANTEROL TRIFENATATE
     Indication: COUGH
     Dosage: 1 PUFF(S), QD
     Route: 055
     Dates: start: 20190328
  2. OXYGENE [Concomitant]
     Active Substance: OXYGEN

REACTIONS (11)
  - Blood pressure decreased [Unknown]
  - Blood pressure increased [Unknown]
  - Blood glucose increased [Unknown]
  - Tremor [Unknown]
  - Sensory disturbance [Unknown]
  - Headache [Unknown]
  - Labelled drug-disease interaction medication error [Unknown]
  - Hospitalisation [Not Recovered/Not Resolved]
  - Chills [Unknown]
  - Adverse event [Unknown]
  - Skin discolouration [Unknown]

NARRATIVE: CASE EVENT DATE: 20190328
